FAERS Safety Report 10019376 (Version 1)
Quarter: 2014Q1

REPORT INFORMATION
  Report Type: Spontaneous
  Country: FR (occurrence: FR)
  Receive Date: 20140318
  Receipt Date: 20140318
  Transmission Date: 20141002
  Serious: Yes (Hospitalization)
  Sender: FDA-Public Use
  Company Number: FR-TEVA-468821ISR

PATIENT
  Age: 54 Year
  Sex: Male

DRUGS (8)
  1. DOXORUBICIN TEVA [Suspect]
     Indication: NON-HODGKIN^S LYMPHOMA
     Dosage: RECEIVED 4 COURSES
     Dates: start: 20070417, end: 20070531
  2. ENDOXAN [Suspect]
     Indication: NON-HODGKIN^S LYMPHOMA
     Dates: start: 20070417, end: 20070531
  3. ONCOVIN [Suspect]
     Indication: NON-HODGKIN^S LYMPHOMA
     Dates: start: 20070417, end: 20070531
  4. MABTHERA [Suspect]
     Indication: NON-HODGKIN^S LYMPHOMA
     Dates: start: 20070417, end: 20070531
  5. AUGMENTIN [Concomitant]
     Dates: start: 200706, end: 20070614
  6. CIFLOX 800MG [Concomitant]
     Dates: start: 200706, end: 20070614
  7. BACTRIM [Concomitant]
     Dates: start: 20070621
  8. CORTICOSTEROIDS [Concomitant]
     Dates: start: 20070621

REACTIONS (1)
  - Interstitial lung disease [Recovered/Resolved]
